FAERS Safety Report 7540287-X (Version None)
Quarter: 2011Q2

REPORT INFORMATION
  Report Type: 
  Country: None (occurrence: None)
  Receive Date: 20110610
  Receipt Date: 20110531
  Transmission Date: 20111010
  Serious: Yes (Other)
  Sender: FDA-Public Use
  Company Number: PHFR2011GB00638

PATIENT
  Sex: Female

DRUGS (1)
  1. ZOLEDRONIC ACID [Suspect]
     Indication: OSTEOPOROSIS
     Dosage: UNK
     Dates: start: 20100801

REACTIONS (5)
  - TONGUE DRY [None]
  - GLOSSODYNIA [None]
  - STOMATITIS [None]
  - LOWER RESPIRATORY TRACT INFECTION [None]
  - MALAISE [None]
